FAERS Safety Report 9563257 (Version 1)
Quarter: 2013Q3

REPORT INFORMATION
  Report Type: Spontaneous
  Country: VN (occurrence: VN)
  Receive Date: 20130927
  Receipt Date: 20130927
  Transmission Date: 20140515
  Serious: Yes (Hospitalization)
  Sender: FDA-Public Use
  Company Number: PHHY2013VN107568

PATIENT
  Age: 73 Year
  Sex: Female
  Weight: 50 kg

DRUGS (3)
  1. ACLASTA [Suspect]
     Indication: OSTEOPOROSIS
     Dosage: 5 MG, PER 100 ML YEARLY
     Route: 042
     Dates: start: 20130914
  2. VIT D3 [Concomitant]
     Indication: OSTEOPOROSIS
     Dosage: 2000 UI, EVERY OTHER DAY
     Route: 048
     Dates: start: 20130615
  3. EFFERALGAN [Concomitant]
     Indication: PROPHYLAXIS
     Dosage: 0.5 G, TID
     Route: 048
     Dates: start: 20130914, end: 20130921

REACTIONS (6)
  - Chest discomfort [Recovered/Resolved]
  - Pyrexia [Recovered/Resolved]
  - Headache [Recovered/Resolved]
  - Vomiting [Recovered/Resolved]
  - Somnolence [Recovered/Resolved]
  - Myalgia [Recovered/Resolved]
